FAERS Safety Report 5337631-0 (Version None)
Quarter: 2007Q2

REPORT INFORMATION
  Report Type: 
  Country: None (occurrence: None)
  Receive Date: 20070524
  Receipt Date: 20070517
  Transmission Date: 20071010
  Serious: Yes (Other)
  Sender: FDA-Public Use
  Company Number: 2007SS000024

PATIENT
  Sex: Female

DRUGS (6)
  1. MYOBLOC [Suspect]
     Indication: MIGRAINE
     Dosage: 7500 UNITS; X1; IM
     Route: 030
     Dates: start: 20050701, end: 20050701
  2. MYOBLOC [Suspect]
     Indication: OFF LABEL USE
     Dosage: 7500 UNITS; X1; IM
     Route: 030
     Dates: start: 20050701, end: 20050701
  3. MYOBLOC [Suspect]
     Indication: MIGRAINE
     Dosage: 7500 UNITS; X1; IM
     Route: 030
     Dates: start: 20051001, end: 20051001
  4. MYOBLOC [Suspect]
     Indication: OFF LABEL USE
     Dosage: 7500 UNITS; X1; IM
     Route: 030
     Dates: start: 20051001, end: 20051001
  5. MYOBLOC [Suspect]
     Indication: MIGRAINE
     Dosage: 7500 UNITS; X1; IM
     Route: 030
     Dates: start: 20070503, end: 20070503
  6. MYOBLOC [Suspect]
     Indication: OFF LABEL USE
     Dosage: 7500 UNITS; X1; IM
     Route: 030
     Dates: start: 20070503, end: 20070503

REACTIONS (8)
  - ADRENOCORTICAL INSUFFICIENCY ACUTE [None]
  - DIZZINESS [None]
  - DRY EYE [None]
  - DRY MOUTH [None]
  - FATIGUE [None]
  - MUSCULAR WEAKNESS [None]
  - TACHYCARDIA [None]
  - VISION BLURRED [None]
